FAERS Safety Report 7954148-5 (Version None)
Quarter: 2011Q4

REPORT INFORMATION
  Report Type: 
  Country: None (occurrence: None)
  Receive Date: 20111202
  Receipt Date: 20111128
  Transmission Date: 20120403
  Serious: Yes (Hospitalization)
  Sender: FDA-Public Use
  Company Number: US-AMGEN-USASP2011062719

PATIENT
  Age: 48 Year
  Sex: Female

DRUGS (2)
  1. ENBREL [Suspect]
     Indication: RHEUMATOID ARTHRITIS
     Dosage: 50 MG, QWK
     Dates: start: 20110316
  2. METHOTREXATE [Concomitant]
     Dosage: 8 MG, QWK
     Dates: start: 20110201

REACTIONS (6)
  - GOITRE [None]
  - SINUS HEADACHE [None]
  - PILONIDAL CYST [None]
  - FATIGUE [None]
  - SINUS DISORDER [None]
  - PAIN [None]
